FAERS Safety Report 5996368-5 (Version None)
Quarter: 2008Q4

REPORT INFORMATION
  Report Type: 
  Country: None (occurrence: None)
  Receive Date: 20081212
  Receipt Date: 20081015
  Transmission Date: 20090506
  Serious: No
  Sender: FDA-Public Use
  Company Number: US-ABBOTT-08P-163-0481811-00

PATIENT
  Sex: Male
  Weight: 98.972 kg

DRUGS (12)
  1. HUMIRA [Suspect]
     Indication: RHEUMATOID ARTHRITIS
     Route: 058
     Dates: start: 20050101
  2. MELOXICAM [Concomitant]
     Indication: RHEUMATOID ARTHRITIS
     Route: 048
  3. FINASTERIDE [Concomitant]
     Indication: PROSTATIC DISORDER
     Route: 048
  4. ZOLPIDEM [Concomitant]
     Indication: SLEEP DISORDER
     Route: 048
  5. MECLIZINE [Concomitant]
     Indication: DIZZINESS
     Route: 048
  6. LISINOPRIL [Concomitant]
     Indication: HYPERTENSION
     Route: 048
  7. GLYBURIDE [Concomitant]
     Indication: DIABETES MELLITUS
     Route: 048
  8. MORNIFLUMATE [Concomitant]
     Indication: PROSTATIC DISORDER
     Route: 048
  9. METFORMIN HCL [Concomitant]
     Indication: DIABETES MELLITUS
     Route: 048
  10. NIZATIDINE [Concomitant]
     Indication: DRUG USE FOR UNKNOWN INDICATION
     Route: 048
  11. PROPYLTHIOUR [Concomitant]
     Indication: THYROID DISORDER
     Route: 048
  12. NARCO [Concomitant]
     Indication: PAIN
     Dosage: 10/325MG AS REQUIRED
     Route: 048

REACTIONS (2)
  - BACK PAIN [None]
  - DISLOCATION OF VERTEBRA [None]
